FAERS Safety Report 9138136 (Version 2)
Quarter: 2015Q1

REPORT INFORMATION
  Report Type: Spontaneous
  Country: CA (occurrence: CA)
  Receive Date: 20130304
  Receipt Date: 20150130
  Transmission Date: 20150721
  Serious: Yes (Other)
  Sender: FDA-Public Use
  Company Number: CA-BAUSCH-BL-2012-002244

PATIENT
  Age: 49 Year
  Sex: Male

DRUGS (6)
  1. LIPOSIC OPHTHALMIC DROPS [Suspect]
     Active Substance: CARBOMER
     Indication: POSTOPERATIVE CARE
     Dosage: DROPS; OPHTHALMIC
  2. BESIVANCE [Suspect]
     Active Substance: BESIFLOXACIN
     Indication: OFF LABEL USE
  3. LOTEMAX [Suspect]
     Active Substance: LOTEPREDNOL ETABONATE
     Indication: OFF LABEL USE
     Dosage: DROPS; OPHTHALMIC
     Route: 047
     Dates: start: 20121122
  4. LOTEMAX [Suspect]
     Active Substance: LOTEPREDNOL ETABONATE
     Indication: POSTOPERATIVE CARE
     Dosage: 4 TIMES DAILY IN BOTH THE EYES
     Route: 047
  5. LIPOSIC OPHTHALMIC DROPS [Suspect]
     Active Substance: CARBOMER
     Indication: OFF LABEL USE
  6. BESIVANCE [Suspect]
     Active Substance: BESIFLOXACIN
     Indication: POSTOPERATIVE CARE
     Dosage: 4 TIMES DAILY IN BOTH THE EYES
     Route: 047

REACTIONS (19)
  - Strabismus [Recovered/Resolved]
  - Lacrimation increased [Recovered/Resolved]
  - Photosensitivity reaction [Recovered/Resolved]
  - Eye pain [Unknown]
  - Corneal striae [Unknown]
  - Diffuse lamellar keratitis [Unknown]
  - Eye inflammation [Recovered/Resolved]
  - Photophobia [Unknown]
  - Ocular discomfort [Recovered/Resolved]
  - Dry eye [Recovered/Resolved]
  - Eye pain [Recovered/Resolved]
  - Corneal infiltrates [Unknown]
  - Visual impairment [Unknown]
  - Eye oedema [Recovered/Resolved]
  - Corneal deposits [Recovered/Resolved]
  - Eye burns [Recovered/Resolved]
  - Medication residue present [Recovered/Resolved]
  - Scar [Unknown]
  - Vision blurred [Unknown]

NARRATIVE: CASE EVENT DATE: 20120509
